FAERS Safety Report 12402430 (Version 2)
Quarter: 2017Q2

REPORT INFORMATION
  Report Type: Spontaneous
  Country: FR (occurrence: FR)
  Receive Date: 20160525
  Receipt Date: 20170612
  Transmission Date: 20170830
  Serious: Yes (Death, Hospitalization, Other)
  Sender: FDA-Public Use
  Company Number: FR-MYLANLABS-2016M1021483

PATIENT

DRUGS (4)
  1. IBUPROFEN. [Suspect]
     Active Substance: IBUPROFEN
     Indication: PRODUCT USED FOR UNKNOWN INDICATION
     Dosage: ONE STRIP OF 400 MG
     Route: 048
  2. FENOFIBRATE. [Suspect]
     Active Substance: FENOFIBRATE
     Indication: PRODUCT USED FOR UNKNOWN INDICATION
     Dosage: ONE STRIP
     Route: 048
  3. COLCHICINE. [Suspect]
     Active Substance: COLCHICINE
     Indication: PRODUCT USED FOR UNKNOWN INDICATION
     Dosage: 50-60 TABLETS OF 1 MG COLCHICINE (IE A SUPPOSED INGESTED DOSE OF 0.8-0.9 MG/KG)
     Route: 048
  4. PREDNISONE. [Suspect]
     Active Substance: PREDNISONE
     Indication: PRODUCT USED FOR UNKNOWN INDICATION
     Dosage: 20 DF, UNK
     Route: 048

REACTIONS (11)
  - Cardiogenic shock [Fatal]
  - Haemorrhage [Unknown]
  - Cardiac failure [Fatal]
  - Vomiting [Unknown]
  - Intentional overdose [Fatal]
  - Multiple organ dysfunction syndrome [Fatal]
  - Leukocytosis [Unknown]
  - Thrombocytopenia [Unknown]
  - Respiratory distress [Unknown]
  - Completed suicide [Fatal]
  - Toxicity to various agents [Fatal]
